FAERS Safety Report 9435491 (Version 1)
Quarter: 2013Q3

REPORT INFORMATION
  Report Type: Spontaneous
  Country: US (occurrence: US)
  Receive Date: 20130801
  Receipt Date: 20130801
  Transmission Date: 20140515
  Serious: Yes (Other)
  Sender: FDA-Public Use
  Company Number: US-BAYER-2013-091162

PATIENT
  Age: 33 Year
  Sex: Female
  Weight: 58.96 kg

DRUGS (6)
  1. BETASERON [Suspect]
     Dosage: 1 ML, QOD
     Route: 058
     Dates: start: 2003, end: 2013
  2. ADVIL [Concomitant]
  3. TYLENOL [PARACETAMOL] [Concomitant]
  4. CALCIUM [Concomitant]
  5. ASPIRIN [Concomitant]
  6. VITAMIN D [Concomitant]

REACTIONS (1)
  - Cardiomyopathy [Unknown]
